FAERS Safety Report 11168152 (Version 1)
Quarter: 2015Q2

REPORT INFORMATION
  Report Type: Spontaneous
  Country: US (occurrence: None)
  Receive Date: 20150604
  Receipt Date: 20150604
  Transmission Date: 20150821
  Serious: No
  Sender: FDA-Public Use
  Company Number: None

PATIENT
  Age: 9 Year
  Sex: Female

DRUGS (2)
  1. NORDITROPIN [Suspect]
     Active Substance: SOMATROPIN
     Indication: GONADAL DYSGENESIS
     Dosage: 0.5MG QHS SQ
     Route: 058
     Dates: start: 20150428
  2. MULTIVITAMIN CAP [Concomitant]

REACTIONS (2)
  - No adverse event [None]
  - Drug dose omission [None]

NARRATIVE: CASE EVENT DATE: 20150531
